FAERS Safety Report 22141394 (Version 1)
Quarter: 2023Q1

REPORT INFORMATION
  Report Type: Spontaneous
  Country: US (occurrence: None)
  Receive Date: 20230324
  Receipt Date: 20230324
  Transmission Date: 20230418
  Serious: No
  Sender: FDA-Public Use
  Company Number: None

PATIENT
  Sex: Female
  Weight: 25.7 kg

DRUGS (1)
  1. GENOTROPIN [Suspect]
     Active Substance: SOMATROPIN
     Indication: Hypopituitarism
     Dosage: 0.8ML DAILY SUBCUTANEOUSLY?
     Route: 058
     Dates: start: 20230221

REACTIONS (4)
  - Product substitution issue [None]
  - Therapy interrupted [None]
  - Injection site pain [None]
  - Injection site pain [None]
